FAERS Safety Report 6039270-5 (Version None)
Quarter: 2009Q1

REPORT INFORMATION
  Report Type: 
  Country: None (occurrence: None)
  Receive Date: 20090115
  Receipt Date: 20090107
  Transmission Date: 20090719
  Serious: Yes (Hospitalization, Other)
  Sender: FDA-Public Use
  Company Number: PHHY2009CA00936

PATIENT
  Sex: Male

DRUGS (2)
  1. EXJADE [Suspect]
     Indication: IRON OVERLOAD
     Dosage: 300 MG, UNK
     Route: 048
     Dates: start: 20071101
  2. EXJADE [Suspect]
     Indication: APLASTIC ANAEMIA

REACTIONS (1)
  - BONE MARROW TRANSPLANT [None]
